FAERS Safety Report 5370074-2 (Version None)
Quarter: 2007Q2

REPORT INFORMATION
  Report Type: 
  Country: None (occurrence: None)
  Receive Date: 20070613
  Receipt Date: 20060830
  Transmission Date: 20071010
  Serious: Yes (Other)
  Sender: FDA-Public Use
  Company Number: PHEH2006US09049

PATIENT
  Age: 71 Year
  Sex: Female

DRUGS (2)
  1. EXELON [Suspect]
     Indication: DEMENTIA ALZHEIMER'S TYPE
     Dosage: 12 MG, QD, ORAL; 18 MG, QD, ORAL; 6 MG, QD, ORAL
     Route: 048
     Dates: start: 20030225
  2. GEODON [Concomitant]

REACTIONS (4)
  - AMNESIA [None]
  - COORDINATION ABNORMAL [None]
  - FALL [None]
  - HIP FRACTURE [None]
